FAERS Safety Report 8455698 (Version 3)
Quarter: 2012Q4

REPORT INFORMATION
  Report Type: 
  Country: JP (occurrence: JP)
  Receive Date: 20120313
  Receipt Date: 20120917
  Transmission Date: 20130627
  Serious: Yes (Other)
  Sender: FDA-Public Use
  Company Number: JP-PFIZER INC-2011211245

PATIENT
  Age: 60 Year
  Sex: Female

DRUGS (7)
  1. LYRICA [Suspect]
     Indication: PAIN
     Dosage: 25 mg, 1x/day
     Route: 048
     Dates: start: 201107
  2. METHYCOBAL [Concomitant]
     Dosage: UNK
  3. VITAMIN D [Concomitant]
     Dosage: UNK
  4. URSO [Concomitant]
     Dosage: UNK
  5. LEVACT [Concomitant]
     Dosage: UNK
  6. ROCALTROL [Concomitant]
     Dosage: UNK
  7. JUVELA [Concomitant]
     Dosage: UNK

REACTIONS (15)
  - Fall [Unknown]
  - Head injury [Unknown]
  - CREST syndrome [Unknown]
  - Convulsion [Unknown]
  - Somnolence [Unknown]
  - Pain [Unknown]
  - Abnormal faeces [Unknown]
  - Oedema [Unknown]
  - Feeling abnormal [Unknown]
  - Oedema peripheral [Unknown]
  - Platelet count decreased [Unknown]
  - Osteoporosis [Unknown]
  - Myalgia [Unknown]
  - Asthenia [Unknown]
  - Chromaturia [Unknown]
